FAERS Safety Report 8214767-8 (Version None)
Quarter: 2012Q1

REPORT INFORMATION
  Report Type: 
  Country: None (occurrence: None)
  Receive Date: 20120316
  Receipt Date: 20120302
  Transmission Date: 20120608
  Serious: Yes (Hospitalization)
  Sender: FDA-Public Use
  Company Number: US-ELI_LILLY_AND_COMPANY-US201203001131

PATIENT
  Sex: Male

DRUGS (1)
  1. ZYPREXA [Suspect]
     Indication: SCHIZOPHRENIA
     Dosage: 40 MG, QD
     Route: 048

REACTIONS (4)
  - OVERDOSE [None]
  - INTENTIONAL DRUG MISUSE [None]
  - HOSPITALISATION [None]
  - SUBSTANCE ABUSE [None]
